FAERS Safety Report 6856308-3 (Version None)
Quarter: 2010Q3

REPORT INFORMATION
  Report Type: 
  Country: None (occurrence: None)
  Receive Date: 20100719
  Receipt Date: 20100713
  Transmission Date: 20110219
  Serious: Yes (Life-Threatening, Hospitalization)
  Sender: FDA-Public Use
  Company Number: PHHY2010US42593

PATIENT
  Sex: Female
  Weight: 121 kg

DRUGS (3)
  1. RECLAST [Suspect]
     Indication: OSTEOPOROSIS
     Dosage: 5 MG/100 ML, ONCE YEARLY
     Route: 042
     Dates: start: 20100622
  2. ANTIHYPERTENSIVE DRUGS [Concomitant]
     Indication: HYPERTENSION
  3. LIPID MODIFYING AGENTS [Concomitant]
     Indication: HYPERLIPIDAEMIA

REACTIONS (5)
  - APHASIA [None]
  - CEREBROVASCULAR ACCIDENT [None]
  - CHEST PAIN [None]
  - INFLUENZA LIKE ILLNESS [None]
  - TRANSIENT ISCHAEMIC ATTACK [None]
